FAERS Safety Report 8966799 (Version 1)
Quarter: 2012Q4

REPORT INFORMATION
  Report Type: 
  Country: GB (occurrence: GB)
  Receive Date: 20121217
  Receipt Date: 20121217
  Transmission Date: 20130627
  Serious: Yes (Other)
  Sender: FDA-Public Use
  Company Number: PHFR2012GB006446

PATIENT
  Sex: Female

DRUGS (1)
  1. EXELON PATCH [Suspect]
     Dosage: 9.5 mg, UNK
     Route: 062

REACTIONS (3)
  - Circulatory collapse [Recovered/Resolved]
  - General physical health deterioration [Unknown]
  - Drug intolerance [Unknown]
